FAERS Safety Report 9281846 (Version 4)
Quarter: 2018Q1

REPORT INFORMATION
  Report Type: Spontaneous
  Country: CA (occurrence: CA)
  Receive Date: 20130510
  Receipt Date: 20180226
  Transmission Date: 20180509
  Serious: Yes (Hospitalization, Other)
  Sender: FDA-Public Use
  Company Number: CA-ROCHE-1222471

PATIENT
  Age: 53 Year
  Sex: Female
  Weight: 105 kg

DRUGS (14)
  1. XOLAIR [Suspect]
     Active Substance: OMALIZUMAB
     Route: 058
     Dates: start: 20170220
  2. XOLAIR [Suspect]
     Active Substance: OMALIZUMAB
     Route: 058
     Dates: start: 20180115
  3. XOLAIR [Suspect]
     Active Substance: OMALIZUMAB
     Route: 058
     Dates: start: 20160919
  4. XOLAIR [Suspect]
     Active Substance: OMALIZUMAB
     Indication: ASTHMA
     Route: 058
     Dates: start: 20051115
  5. XOLAIR [Suspect]
     Active Substance: OMALIZUMAB
     Route: 058
     Dates: start: 20090421
  6. XOLAIR [Suspect]
     Active Substance: OMALIZUMAB
     Route: 058
     Dates: start: 20170925
  7. XOLAIR [Suspect]
     Active Substance: OMALIZUMAB
     Route: 058
     Dates: start: 20130430
  8. XOLAIR [Suspect]
     Active Substance: OMALIZUMAB
     Route: 058
     Dates: start: 20171218
  9. XOLAIR [Suspect]
     Active Substance: OMALIZUMAB
     Route: 058
     Dates: start: 20160822
  10. XOLAIR [Suspect]
     Active Substance: OMALIZUMAB
     Route: 058
     Dates: start: 20171120
  11. XOLAIR [Suspect]
     Active Substance: OMALIZUMAB
     Route: 058
     Dates: start: 20130625
  12. XOLAIR [Suspect]
     Active Substance: OMALIZUMAB
     Route: 058
     Dates: start: 20141113
  13. XOLAIR [Suspect]
     Active Substance: OMALIZUMAB
     Route: 058
     Dates: start: 20170109
  14. XOLAIR [Suspect]
     Active Substance: OMALIZUMAB
     Route: 058
     Dates: start: 20160530

REACTIONS (27)
  - Pharyngitis [Unknown]
  - Nasopharyngitis [Unknown]
  - Throat irritation [Recovered/Resolved]
  - Stress [Unknown]
  - Vascular resistance systemic [Unknown]
  - Sinusitis [Unknown]
  - Sneezing [Recovering/Resolving]
  - Respiratory rate increased [Unknown]
  - Seasonal allergy [Not Recovered/Not Resolved]
  - Dysuria [Unknown]
  - Vomiting [Recovering/Resolving]
  - Blood pressure systolic increased [Unknown]
  - Hypersensitivity [Recovered/Resolved]
  - Dysphonia [Unknown]
  - Nasal congestion [Recovering/Resolving]
  - Muscle spasms [Unknown]
  - Weight decreased [Unknown]
  - Laryngitis [Unknown]
  - Abdominal pain [Not Recovered/Not Resolved]
  - Oropharyngeal pain [Unknown]
  - Heart rate increased [Recovering/Resolving]
  - Nausea [Recovering/Resolving]
  - Rash [Unknown]
  - Influenza [Unknown]
  - Food allergy [Unknown]
  - Malaise [Recovering/Resolving]
  - Urinary tract infection [Unknown]

NARRATIVE: CASE EVENT DATE: 20120103
